FAERS Safety Report 25866691 (Version 3)
Quarter: 2025Q4

REPORT INFORMATION
  Report Type: Spontaneous
  Country: US (occurrence: US)
  Receive Date: 20250930
  Receipt Date: 20251116
  Transmission Date: 20260117
  Serious: No
  Sender: CSL BEHRING
  Company Number: US-BEH-2025219744

PATIENT
  Age: 76 Year
  Sex: Female
  Weight: 74.5 kg

DRUGS (24)
  1. ZEMAIRA [Suspect]
     Active Substance: .ALPHA.1-PROTEINASE INHIBITOR HUMAN
     Indication: Alpha-1 antitrypsin deficiency
     Dosage: UNK
     Route: 042
     Dates: start: 20250912
  2. ZEMAIRA [Suspect]
     Active Substance: .ALPHA.1-PROTEINASE INHIBITOR HUMAN
     Dosage: 1.0 MG, BIW
     Route: 042
     Dates: start: 20250919, end: 20250922
  3. ZEMAIRA [Suspect]
     Active Substance: .ALPHA.1-PROTEINASE INHIBITOR HUMAN
     Dosage: 1000
     Route: 042
     Dates: start: 20250919, end: 20251024
  4. ZEMAIRA [Suspect]
     Active Substance: .ALPHA.1-PROTEINASE INHIBITOR HUMAN
     Dosage: 3 MG, QW
     Route: 042
     Dates: start: 20251028, end: 20251028
  5. ZEMAIRA [Suspect]
     Active Substance: .ALPHA.1-PROTEINASE INHIBITOR HUMAN
     Dosage: UNK, QW
     Route: 042
     Dates: start: 20250919
  6. ALBUTEROL SULFATE [Concomitant]
     Active Substance: ALBUTEROL SULFATE
     Indication: Dyspnoea
     Dosage: 2.5 MG/3 ML (0.083 PERCENT), INHALE ONE AMPUL PER NEBULIZER EVERY FOUR TO SIX HOURS AS NEEDED
     Dates: start: 20220308
  7. ALBUTEROL SULFATE [Concomitant]
     Active Substance: ALBUTEROL SULFATE
     Indication: Wheezing
  8. ALBUTEROL SULFATE [Concomitant]
     Active Substance: ALBUTEROL SULFATE
     Dosage: 90 MCG, INHALE TWO PUFFS BY MOUTH FOUR TIMES PER DAY AS NEEDED
     Dates: start: 20230510
  9. ALEVE [Concomitant]
     Active Substance: NAPROXEN SODIUM
     Indication: Pain
     Dosage: 220 MG, EVERY 6 HOURS AS NEEDED
     Route: 048
  10. AZITHROMYCIN [Concomitant]
     Active Substance: AZITHROMYCIN
     Indication: Prophylaxis
     Dosage: 1 DF, DAILY ON MONDAYS, WEDNESDAYS, AND FRIDAYS
     Dates: start: 20250702
  11. BREO ELLIPTA [Concomitant]
     Active Substance: FLUTICASONE FUROATE\VILANTEROL TRIFENATATE
     Dosage: 100 MCG-25 MCG/DOSE, INHALE ONE PUFF BY MOUTH DAILY
     Dates: start: 20250710
  12. CALCIUM [Concomitant]
     Active Substance: CALCIUM
     Dosage: 500 MG CALCIUM (1,250 MG), CHEW
     Route: 048
  13. DOXYCYCLINE HYCLATE [Concomitant]
     Active Substance: DOXYCYCLINE HYCLATE
     Indication: Chronic obstructive pulmonary disease
     Dosage: 100 MG, BID
     Route: 048
     Dates: start: 20250528
  14. ALBUTEROL\IPRATROPIUM [Concomitant]
     Active Substance: ALBUTEROL\IPRATROPIUM
     Dosage: 0.5 MG-3 MG (2.5 MG BASE)/3 ML, (INHALE 3 MILLILITER BY NEBULIZATION ROUTE) TWICE DAILY FOR 7 DAYS
     Dates: start: 20240528
  15. LASIX [Concomitant]
     Active Substance: FUROSEMIDE
     Dosage: 20 MG
     Route: 048
     Dates: start: 20250606
  16. LASIX [Concomitant]
     Active Substance: FUROSEMIDE
     Dosage: 20 MG, QD
     Route: 048
     Dates: start: 20250820
  17. LEVOTHYROXINE SODIUM [Concomitant]
     Active Substance: LEVOTHYROXINE SODIUM
     Dosage: 75 MCG, MORNING ON AN EMPTY STOMACH 30 MINUTES BEFORE FOOD, DRINK OR OTHER MEDICATION
  18. LORATADINE [Concomitant]
     Active Substance: LORATADINE
     Dosage: 10 MG, QD
     Route: 048
     Dates: start: 20230110
  19. MEDROL [Concomitant]
     Active Substance: METHYLPREDNISOLONE
     Dosage: 4 MG, AS DIRECTED PER PACKAGE
     Route: 048
     Dates: start: 20250603
  20. METOPROLOL TARTRATE [Concomitant]
     Active Substance: METOPROLOL TARTRATE
     Dosage: 25 MG, BID
     Route: 048
     Dates: start: 20241029
  21. MIRALAX [Concomitant]
     Active Substance: POLYETHYLENE GLYCOL 3350
     Indication: Constipation
     Dosage: 17 G, EVERY DAY MIXED WITH 8 OZ. WATER, JUICE, SODA, COFFEE OR TEA AS NEEDED
     Route: 048
  22. OXYGEN [Concomitant]
     Active Substance: OXYGEN
  23. SPIRIVA RESPIMAT [Concomitant]
     Active Substance: TIOTROPIUM BROMIDE
     Dosage: 2.5 MCG/ACTUATION, INHALE 2 PUFF BY INHALATION ROUTE EVERY DAY AT THE SAME TIME EACH DAY
     Dates: start: 20230707
  24. SPIRIVA RESPIMAT [Concomitant]
     Active Substance: TIOTROPIUM BROMIDE
     Dosage: 2.5 MCG/ACTUATION, INHALE 2 PUFF BY INHALATION ROUTE EVERY DAY AT THE SAME TIME EACH DAY
     Dates: start: 20250710

REACTIONS (8)
  - Dyspnoea [Not Recovered/Not Resolved]
  - Dyspnoea [Unknown]
  - Diarrhoea [Not Recovered/Not Resolved]
  - Headache [Not Recovered/Not Resolved]
  - Ear pain [Not Recovered/Not Resolved]
  - Dyspnoea [Recovering/Resolving]
  - Headache [Recovering/Resolving]
  - Ear pain [Recovering/Resolving]

NARRATIVE: CASE EVENT DATE: 20250919
